FAERS Safety Report 6400262-5 (Version None)
Quarter: 2009Q4

REPORT INFORMATION
  Report Type: 
  Country: None (occurrence: None)
  Receive Date: 20091014
  Receipt Date: 20091012
  Transmission Date: 20100525
  Serious: Yes (Hospitalization, Other)
  Sender: FDA-Public Use
  Company Number: US-MERCK-0910USA00587

PATIENT
  Age: 64 Year
  Sex: Female

DRUGS (11)
  1. VYTORIN [Suspect]
     Route: 048
     Dates: start: 20090101
  2. LYRICA [Suspect]
     Route: 065
     Dates: start: 20090701
  3. CELEBREX [Suspect]
     Route: 065
  4. ZOCOR [Concomitant]
     Route: 048
  5. ENALAPRIL MALEATE [Concomitant]
     Route: 065
  6. LASIX [Concomitant]
     Route: 065
  7. PEPCID [Concomitant]
     Route: 048
  8. PERCOCET [Concomitant]
     Route: 065
  9. PLAVIX [Concomitant]
     Route: 065
  10. ALISKIREN [Concomitant]
     Route: 065
  11. PROZAC [Concomitant]
     Route: 065

REACTIONS (4)
  - NAUSEA [None]
  - PRESYNCOPE [None]
  - RENAL FAILURE [None]
  - RHABDOMYOLYSIS [None]
